FAERS Safety Report 25868820 (Version 1)
Quarter: 2025Q4

REPORT INFORMATION
  Report Type: Spontaneous
  Country: GB (occurrence: GB)
  Receive Date: 20251001
  Receipt Date: 20251001
  Transmission Date: 20260117
  Serious: Yes (Other)
  Sender: MYLAN
  Company Number: GB-MYLANLABS-2025M1071117

PATIENT
  Sex: Male
  Weight: 66.45 kg

DRUGS (5)
  1. CLOZARIL [Suspect]
     Active Substance: CLOZAPINE
     Indication: Product used for unknown indication
     Dosage: UNK UNK, BID (50 MG MANE AND 200 MG NOCTE)
     Dates: start: 20200226
  2. OMEPRAZOLE [Concomitant]
     Active Substance: OMEPRAZOLE
     Dosage: 20 MILLIGRAM, QD (OD)
  3. FOLIC ACID [Concomitant]
     Active Substance: FOLIC ACID
     Dosage: 5 MILLIGRAM, QD (OD)
  4. CLONAZEPAM [Concomitant]
     Active Substance: CLONAZEPAM
     Dosage: 250 MICROGRAM, PM (NOCTE, AT NIGHT)
  5. BECLOMETHASONE [Concomitant]
     Active Substance: BECLOMETHASONE
     Dosage: 50 MICROGRAM, BID (BD)

REACTIONS (2)
  - Thrombocytopenia [Not Recovered/Not Resolved]
  - White blood cell count abnormal [Not Recovered/Not Resolved]
